FAERS Safety Report 12189092 (Version 1)
Quarter: 2016Q1

REPORT INFORMATION
  Report Type: Report from Study
  Country: DE (occurrence: CO)
  Receive Date: 20160317
  Receipt Date: 20160317
  Transmission Date: 20160526
  Serious: Yes (Death, Other)
  Sender: FDA-Public Use
  Company Number: DE-ACTELION-A-NJ2016-133127

PATIENT
  Age: 76 Year
  Sex: Male

DRUGS (1)
  1. VENTAVIS [Suspect]
     Active Substance: ILOPROST
     Indication: PULMONARY ARTERIAL HYPERTENSION
     Dosage: 5.0 MG,6X/DAILY
     Route: 055
     Dates: start: 20141120, end: 20141209

REACTIONS (1)
  - Cardiac arrest [Fatal]

NARRATIVE: CASE EVENT DATE: 20141209
